FAERS Safety Report 6581845-9 (Version None)
Quarter: 2010Q1

REPORT INFORMATION
  Report Type: 
  Country: None (occurrence: None)
  Receive Date: 20100215
  Receipt Date: 20100113
  Transmission Date: 20100710
  Serious: No
  Sender: FDA-Public Use
  Company Number: US-BAYER-201010853BCC

PATIENT
  Age: 30 Year
  Sex: Female
  Weight: 93 kg

DRUGS (1)
  1. ALEVE [Suspect]
     Indication: HEADACHE
     Dosage: TOTAL DAILY DOSE: 440 MG  UNIT DOSE: 220 MG
     Route: 048
     Dates: start: 20100113

REACTIONS (4)
  - ORAL PRURITUS [None]
  - PARAESTHESIA ORAL [None]
  - SWOLLEN TONGUE [None]
  - THROAT IRRITATION [None]
